FAERS Safety Report 5454233-6 (Version None)
Quarter: 2007Q3

REPORT INFORMATION
  Report Type: 
  Country: None (occurrence: None)
  Receive Date: 20070813
  Receipt Date: 20060922
  Transmission Date: 20080115
  Serious: No
  Sender: FDA-Public Use
  Company Number: 20062983

PATIENT
  Sex: Male

DRUGS (1)
  1. BACLOFEN [Suspect]
     Indication: MUSCLE SPASTICITY
     Dosage: 185 MCG, DAILY, INTRATHECAL
     Route: 037
     Dates: start: 20030117, end: 20060112

REACTIONS (1)
  - DYSPHAGIA [None]
